FAERS Safety Report 10388714 (Version 1)
Quarter: 2014Q1

REPORT INFORMATION
  Report Type: Spontaneous
  Country: US (occurrence: None)
  Receive Date: 20140306
  Receipt Date: 20140306
  Transmission Date: 20141002
  Serious: Yes (Other)
  Sender: FDA-Public Use
  Company Number: 163-21880-13071145

PATIENT
  Age: 66 Year
  Sex: Female
  Weight: 49.9 kg

DRUGS (10)
  1. REVLIMID (LENALIDOMIDE) (10 MILLIGRAM, CAPSULES) [Suspect]
     Indication: PLASMA CELL MYELOMA
     Route: 048
     Dates: start: 201209
  2. TRAMADOL HCL (TABLETS) [Concomitant]
  3. CARVEDILOL (TABLETS) [Concomitant]
  4. ONDANSETRON HCL (TABLETS) [Concomitant]
  5. SERTRALINE HCL (TABLETS) [Concomitant]
  6. MICARDIS (TELMISARTAN) (TABLETS) [Concomitant]
  7. CALCITRATE (CALCIUM) (200 MILLIGRAM, TABLETS) [Concomitant]
  8. OMEPRAZOLE (TABLETS) [Concomitant]
  9. XARELTO (RIVAROXBAN) (TABLETS) [Concomitant]
  10. DEXAMETHASONE (TABLETS) [Concomitant]

REACTIONS (1)
  - Thrombosis [None]
